FAERS Safety Report 5163918-0 (Version None)
Quarter: 2006Q4

REPORT INFORMATION
  Report Type: 
  Country: None (occurrence: None)
  Receive Date: 20061124
  Receipt Date: 20061113
  Transmission Date: 20070319
  Serious: Yes (Other)
  Sender: FDA-Public Use
  Company Number: 2006031231

PATIENT
  Age: 60 Year
  Sex: Male
  Weight: 78.9 kg

DRUGS (6)
  1. SUTENT [Suspect]
     Indication: RENAL CELL CARCINOMA STAGE UNSPECIFIED
     Dosage: 37.5 MG (12.5 MG, 1 IN 1 D), ORAL
     Route: 048
     Dates: start: 20051027
  2. HYDROCHLOROTHIAZIDE [Concomitant]
  3. NORVASC [Concomitant]
  4. ATENOLOL [Concomitant]
  5. POTASSIUM CHLORIDE [Concomitant]
  6. LOPERAMIDE HYDROCHLORIDE [Concomitant]

REACTIONS (2)
  - PERIANAL ABSCESS [None]
  - RECTAL HAEMORRHAGE [None]
